FAERS Safety Report 7290123-4 (Version None)
Quarter: 2011Q1

REPORT INFORMATION
  Report Type: 
  Country: None (occurrence: None)
  Receive Date: 20110214
  Receipt Date: 20110207
  Transmission Date: 20110831
  Serious: Yes (Hospitalization)
  Sender: FDA-Public Use
  Company Number: US-BRISTOL-MYERS SQUIBB COMPANY-15535917

PATIENT
  Age: 64 Year
  Sex: Male
  Weight: 46 kg

DRUGS (4)
  1. PACLITAXEL [Suspect]
     Indication: NON-SMALL CELL LUNG CANCER
     Dosage: RECENT INF ON 23JUL09
     Route: 042
     Dates: start: 20090701
  2. METFORMIN HYDROCHLORIDE [Concomitant]
  3. MORPHINE [Concomitant]
  4. CARBOPLATIN [Suspect]
     Indication: NON-SMALL CELL LUNG CANCER
     Dosage: RECENT INF ON 23JUL09
     Route: 042
     Dates: start: 20090701

REACTIONS (3)
  - SYNCOPE [None]
  - ANAL ABSCESS [None]
  - CELLULITIS [None]
